FAERS Safety Report 9112044 (Version 1)
Quarter: 2013Q1

REPORT INFORMATION
  Report Type: Spontaneous
  Country: US (occurrence: US)
  Receive Date: 20130219
  Receipt Date: 20130219
  Transmission Date: 20140127
  Serious: Yes (Other)
  Sender: FDA-Public Use
  Company Number: US-BRISTOL-MYERS SQUIBB COMPANY-16674475

PATIENT
  Age: 68 Year
  Sex: Female

DRUGS (10)
  1. ORENCIA [Suspect]
     Indication: RHEUMATOID ARTHRITIS
     Route: 042
     Dates: start: 20120608, end: 20120608
  2. LEXAPRO [Concomitant]
  3. JANUVIA [Concomitant]
  4. NEXIUM [Concomitant]
  5. TOPROL [Concomitant]
  6. SYNTHROID [Concomitant]
  7. SINGULAIR [Concomitant]
  8. CALTRATE WITH VITAMIN D [Concomitant]
  9. VITAMIN B6 [Concomitant]
  10. CENTRUM SILVER [Concomitant]

REACTIONS (7)
  - Loss of consciousness [Unknown]
  - Dyspnoea [Unknown]
  - Burning sensation [Unknown]
  - Diarrhoea [Unknown]
  - Dyspepsia [Unknown]
  - Pruritus [Unknown]
  - Vomiting [Unknown]
